FAERS Safety Report 10615060 (Version 1)
Quarter: 2014Q4

REPORT INFORMATION
  Report Type: Spontaneous
  Country: FR (occurrence: FR)
  Receive Date: 20141201
  Receipt Date: 20141201
  Transmission Date: 20150529
  Serious: Yes (Hospitalization)
  Sender: FDA-Public Use
  Company Number: PHHY2014FR155748

PATIENT
  Age: 48 Year
  Sex: Female

DRUGS (2)
  1. ZOMETA [Suspect]
     Active Substance: ZOLEDRONIC ACID
     Indication: BREAST NEOPLASM
     Route: 065
     Dates: start: 201109, end: 201308
  2. XGEVA [Suspect]
     Active Substance: DENOSUMAB
     Indication: BREAST NEOPLASM
     Dosage: 06 INJECTIONS WITHIN 06 MONTHS
     Route: 065
     Dates: start: 201308, end: 201402

REACTIONS (1)
  - Osteonecrosis of jaw [Unknown]

NARRATIVE: CASE EVENT DATE: 201401
